FAERS Safety Report 24587065 (Version 7)
Quarter: 2025Q1

REPORT INFORMATION
  Report Type: Report from Study
  Country: CO (occurrence: CO)
  Receive Date: 20241107
  Receipt Date: 20250327
  Transmission Date: 20250408
  Serious: Yes (Other)
  Sender: ROCHE
  Company Number: CO-002147023-NVSC2024CO150386

PATIENT
  Age: 29 Year
  Sex: Female
  Weight: 65 kg

DRUGS (7)
  1. XOLAIR [Suspect]
     Active Substance: OMALIZUMAB
     Indication: Chronic spontaneous urticaria
     Route: 058
     Dates: start: 202406
  2. XOLAIR [Suspect]
     Active Substance: OMALIZUMAB
     Indication: Urticaria chronic
     Dosage: 300 MG, QMO
     Route: 058
     Dates: start: 20240710
  3. XOLAIR [Suspect]
     Active Substance: OMALIZUMAB
     Route: 058
     Dates: start: 202407
  4. XOLAIR [Suspect]
     Active Substance: OMALIZUMAB
     Dosage: UNK (SECOND DOSE)
     Route: 058
  5. VENLAFAXINE [Concomitant]
     Active Substance: VENLAFAXINE HYDROCHLORIDE
  6. PREGABALIN [Concomitant]
     Active Substance: PREGABALIN
     Indication: Anxiety
  7. BILASTINE [Concomitant]
     Active Substance: BILASTINE
     Indication: Urticaria

REACTIONS (10)
  - Dyspnoea [Unknown]
  - Somnolence [Unknown]
  - Arthralgia [Unknown]
  - Headache [Unknown]
  - Weight increased [Unknown]
  - Blepharitis [Recovering/Resolving]
  - Condition aggravated [Recovered/Resolved]
  - Choking [Recovered/Resolved]
  - Stomatitis [Not Recovered/Not Resolved]
  - Joint swelling [Unknown]

NARRATIVE: CASE EVENT DATE: 20240710
